FAERS Safety Report 22235424 (Version 1)
Quarter: 2023Q2

REPORT INFORMATION
  Report Type: Spontaneous
  Country: US (occurrence: None)
  Receive Date: 20230419
  Receipt Date: 20230419
  Transmission Date: 20230721
  Serious: Yes (Death)
  Sender: FDA-Public Use
  Company Number: None

PATIENT
  Age: 66 Year
  Sex: Male
  Weight: 71.12 kg

DRUGS (7)
  1. COPIKTRA [Suspect]
     Active Substance: DUVELISIB
     Indication: Non-Hodgkin^s lymphoma
     Dosage: FREQUENCY : TWICE A DAY;?
     Route: 048
  2. AZOPT [Concomitant]
     Active Substance: BRINZOLAMIDE
  3. LUMIGAN [Concomitant]
     Active Substance: BIMATOPROST
  4. MULTI FOR HIM [Concomitant]
  5. RHOPRESSA [Concomitant]
     Active Substance: NETARSUDIL MESYLATE
  6. TIMOLOL [Concomitant]
     Active Substance: TIMOLOL
  7. VITAMIN D [Concomitant]
     Active Substance: VITAMIN D NOS

REACTIONS (1)
  - Death [None]
